FAERS Safety Report 9338235 (Version 1)
Quarter: 2013Q2

REPORT INFORMATION
  Report Type: Spontaneous
  Country: US (occurrence: None)
  Receive Date: 20130605
  Receipt Date: 20130605
  Transmission Date: 20140414
  Serious: Yes (Life-Threatening, Hospitalization)
  Sender: FDA-Public Use
  Company Number: None

PATIENT
  Age: 52 Year
  Sex: Female
  Weight: 77.11 kg

DRUGS (1)
  1. METFORMIN [Suspect]
     Indication: DIABETES MELLITUS
     Dosage: ONE TAB, TWICE, DAILY
     Dates: start: 20130321, end: 20130505

REACTIONS (10)
  - Feeling abnormal [None]
  - Abdominal pain upper [None]
  - Abdominal pain upper [None]
  - Diarrhoea [None]
  - Faeces discoloured [None]
  - Dehydration [None]
  - Aphagia [None]
  - Diabetes mellitus inadequate control [None]
  - Pancreatitis [None]
  - Renal disorder [None]
